FAERS Safety Report 21001652 (Version 2)
Quarter: 2022Q3

REPORT INFORMATION
  Report Type: Report from Study
  Country: US (occurrence: US)
  Receive Date: 20220624
  Receipt Date: 20220729
  Transmission Date: 20221026
  Serious: Yes (Hospitalization)
  Sender: FDA-Public Use
  Company Number: US-TAKEDA-2022TUS040553

PATIENT
  Sex: Female

DRUGS (1)
  1. MARIBAVIR [Suspect]
     Active Substance: MARIBAVIR
     Indication: Cytomegalovirus infection
     Dosage: 400 MILLIGRAM, BID
     Route: 048
     Dates: start: 20220514, end: 20220630

REACTIONS (6)
  - Hospitalisation [Unknown]
  - Taste disorder [Unknown]
  - Abdominal discomfort [Unknown]
  - Feeling jittery [Unknown]
  - Tremor [Unknown]
  - Therapy interrupted [Unknown]
